FAERS Safety Report 9240880 (Version 1)
Quarter: 2013Q1

REPORT INFORMATION
  Report Type: Spontaneous
  Country: US (occurrence: None)
  Receive Date: 20121120
  Receipt Date: 20121120
  Transmission Date: 20140127
  Serious: No
  Sender: FDA-Public Use
  Company Number: 1000037558

PATIENT
  Age: 32 Year
  Sex: Male

DRUGS (3)
  1. VIIBRYD [Suspect]
     Indication: DEPRESSION
     Dates: start: 201202
  2. VIIBRYD [Suspect]
     Indication: ANXIETY
     Dates: start: 201202
  3. XANAX (ALPRAZOLAM) (ALPRAZOLAM) [Concomitant]

REACTIONS (3)
  - Muscle twitching [None]
  - Sleep terror [None]
  - Hallucination, auditory [None]
